FAERS Safety Report 21520340 (Version 1)
Quarter: 2022Q4

REPORT INFORMATION
  Report Type: Spontaneous
  Country: FR (occurrence: FR)
  Receive Date: 20221028
  Receipt Date: 20221028
  Transmission Date: 20230113
  Serious: Yes (Other)
  Sender: FDA-Public Use
  Company Number: FR-SUN PHARMACEUTICAL INDUSTRIES LTD-2022R1-361082

PATIENT
  Age: 48 Year
  Sex: Female

DRUGS (2)
  1. HYDROXYCHLOROQUINE [Suspect]
     Active Substance: HYDROXYCHLOROQUINE
     Indication: Anticoagulant therapy
     Route: 065
  2. WARFARIN [Suspect]
     Active Substance: WARFARIN
     Indication: Anticoagulant therapy
     Dosage: UNK
     Route: 065

REACTIONS (10)
  - Livedo reticularis [Recovering/Resolving]
  - Ischaemia [Recovering/Resolving]
  - Renal failure [Recovering/Resolving]
  - Necrosis [Recovering/Resolving]
  - Pulmonary haemorrhage [Recovering/Resolving]
  - Cardiogenic shock [Recovering/Resolving]
  - Adrenal haemorrhage [Recovering/Resolving]
  - Adrenal insufficiency [Recovering/Resolving]
  - Hepatic necrosis [Recovering/Resolving]
  - Gastrointestinal necrosis [Recovering/Resolving]
